FAERS Safety Report 24082323 (Version 1)
Quarter: 2024Q3

REPORT INFORMATION
  Report Type: Spontaneous
  Country: US (occurrence: US)
  Receive Date: 20240712
  Receipt Date: 20240712
  Transmission Date: 20241016
  Serious: No
  Sender: DR REDDYS
  Company Number: US-E2BLSMVVAL-SPO/USA/24/0009770

PATIENT
  Age: 54 Year
  Sex: Female

DRUGS (2)
  1. ZENATANE [Suspect]
     Active Substance: ISOTRETINOIN
     Indication: Acne
     Dosage: ONCE A DAY
     Dates: start: 20240601
  2. VITAMINS [Concomitant]
     Active Substance: VITAMINS
     Indication: Product used for unknown indication

REACTIONS (1)
  - Bowel movement irregularity [Unknown]

NARRATIVE: CASE EVENT DATE: 20240629
